FAERS Safety Report 9255103 (Version 1)
Quarter: 2013Q2

REPORT INFORMATION
  Report Type: Spontaneous
  Country: US (occurrence: US)
  Receive Date: 20130425
  Receipt Date: 20130425
  Transmission Date: 20140414
  Serious: No
  Sender: FDA-Public Use
  Company Number: US-PFIZER INC-2013082089

PATIENT
  Age: 57 Year
  Sex: Female
  Weight: 117.5 kg

DRUGS (6)
  1. ATENOLOL [Suspect]
  2. METFORMIN [Concomitant]
     Indication: DIABETES MELLITUS
     Dosage: UNK
  3. CLONIDINE [Concomitant]
     Indication: HYPERTENSION
     Dosage: 0.2 MG, TWO TIMES A DAY
  4. IRON [Concomitant]
     Dosage: UNK
  5. KLOR-CON [Concomitant]
     Dosage: UNK, ONCE A DAY
  6. DILTIAZEM [Concomitant]
     Dosage: 360 MG, ONCE A DAY

REACTIONS (4)
  - Urticaria [Unknown]
  - Swelling [Unknown]
  - Swollen tongue [Unknown]
  - Hypersensitivity [Unknown]
